FAERS Safety Report 4538636-X (Version None)
Quarter: 2004Q4

REPORT INFORMATION
  Report Type: 
  Country: None (occurrence: None)
  Receive Date: 20041227
  Receipt Date: 20041216
  Transmission Date: 20050328
  Serious: Yes (Death)
  Sender: FDA-Public Use
  Company Number: BE-JNJFOC-20041001058

PATIENT
  Age: 63 Year
  Sex: Male

DRUGS (11)
  1. PROPULSID [Suspect]
     Indication: DIABETIC GASTROPARESIS
     Route: 065
  2. TIMENTIN [Concomitant]
     Route: 042
  3. TIMENTIN [Concomitant]
     Route: 042
  4. DUPHALAC [Concomitant]
     Indication: CONSTIPATION
     Route: 050
  5. D-CURE [Concomitant]
     Dosage: 1 PHIAL
     Route: 050
  6. PHENYTOIN [Concomitant]
     Indication: EPILEPSY
     Route: 042
  7. FRAXIPARINE [Concomitant]
     Indication: THROMBOSIS PROPHYLAXIS
     Route: 058
  8. LOGASTRIC [Concomitant]
     Route: 042
  9. NUTRISON [Concomitant]
     Route: 050
  10. NUTRISON [Concomitant]
     Route: 050
  11. NUTRISON [Concomitant]
     Route: 050

REACTIONS (5)
  - ANOREXIA [None]
  - DEPRESSION [None]
  - GENERAL PHYSICAL HEALTH DETERIORATION [None]
  - NOSOCOMIAL INFECTION [None]
  - SEPSIS [None]
